FAERS Safety Report 8174130 (Version 2)
Quarter: 2014Q1

REPORT INFORMATION
  Report Type: Spontaneous
  Country: US (occurrence: US)
  Receive Date: 20111010
  Receipt Date: 20140117
  Transmission Date: 20141002
  Serious: Yes (Life-Threatening, Hospitalization)
  Sender: FDA-Public Use
  Company Number: US-BAYER-2011-095988

PATIENT
  Age: 28 Year
  Sex: Female

DRUGS (10)
  1. YAZ [Suspect]
     Dosage: UNK
  2. YASMIN [Suspect]
     Dosage: UNK
  3. OCELLA [Suspect]
     Dosage: UNK
  4. IMITREX [Concomitant]
     Dosage: UNK
  5. ACIPHEX [Concomitant]
     Dosage: UNK
  6. ZOFRAN [Concomitant]
     Dosage: UNK
  7. TETRACYCLINE HYDROCHLORIDE [Concomitant]
     Dosage: UNK
  8. RETIN A [Concomitant]
     Dosage: UNK
  9. BENZACLIN [Concomitant]
     Dosage: 5%-1%
  10. MIRALAX [Concomitant]
     Dosage: UNK

REACTIONS (8)
  - Gallbladder disorder [None]
  - Biliary dyskinesia [None]
  - Injury [None]
  - Pain [None]
  - Anxiety [None]
  - Emotional distress [None]
  - Anhedonia [None]
  - General physical health deterioration [None]
